FAERS Safety Report 24779266 (Version 1)
Quarter: 2024Q4

REPORT INFORMATION
  Report Type: Spontaneous
  Country: US (occurrence: None)
  Receive Date: 20241226
  Receipt Date: 20241226
  Transmission Date: 20250115
  Serious: Yes (Hospitalization)
  Sender: Public
  Company Number: None

PATIENT
  Age: 47 Year
  Sex: Female

DRUGS (10)
  1. RINVOQ [Suspect]
     Active Substance: UPADACITINIB
     Indication: Rheumatoid arthritis
     Dosage: FREQ: TAKE 1 TABLET (15 MG) BY MOUTH DAILY?
     Route: 048
     Dates: start: 20240118
  2. BACLOFEN [Concomitant]
     Active Substance: BACLOFEN
  3. BENZONATATE [Concomitant]
     Active Substance: BENZONATATE
  4. ENBREL SPCLK [Concomitant]
  5. FOLIC ACID [Concomitant]
     Active Substance: FOLIC ACID
  6. GABAPENTIN [Concomitant]
     Active Substance: GABAPENTIN
  7. GABAPENTIN [Concomitant]
     Active Substance: GABAPENTIN
  8. HUMIRA [Concomitant]
     Active Substance: ADALIMUMAB
  9. IBUPROFEN [Concomitant]
     Active Substance: IBUPROFEN
  10. METHOTREXATE [Concomitant]
     Active Substance: METHOTREXATE

REACTIONS (2)
  - Therapy interrupted [None]
  - Hospitalisation [None]

NARRATIVE: CASE EVENT DATE: 20241101
